FAERS Safety Report 7922594-1 (Version None)
Quarter: 2011Q4

REPORT INFORMATION
  Report Type: 
  Country: None (occurrence: None)
  Receive Date: 20111117
  Receipt Date: 20101122
  Transmission Date: 20120403
  Serious: No
  Sender: FDA-Public Use
  Company Number: US-ALLERGAN-1015148US

PATIENT
  Age: 66 Year
  Sex: Female

DRUGS (3)
  1. XANAX [Concomitant]
     Indication: ANXIETY
     Dosage: UNK
  2. COMBIGAN [Suspect]
     Indication: GLAUCOMA
     Dosage: 1 GTT, BID
     Route: 047
  3. DIOVAN [Concomitant]
     Indication: HYPERTENSION
     Dosage: 160 MG, QD
     Route: 048

REACTIONS (3)
  - FEELING ABNORMAL [None]
  - FLUSHING [None]
  - HEADACHE [None]
